FAERS Safety Report 8159651-3 (Version None)
Quarter: 2012Q1

REPORT INFORMATION
  Report Type: 
  Country: None (occurrence: None)
  Receive Date: 20120216
  Receipt Date: 20120203
  Transmission Date: 20120608
  Serious: Yes (Hospitalization, Other)
  Sender: FDA-Public Use
  Company Number: CY-1190371

PATIENT
  Sex: Female

DRUGS (1)
  1. TOBRADEX [Suspect]
     Indication: EYE IRRITATION
     Dosage: 1 GTT TID, OS, OPHTHALMIC
     Route: 047

REACTIONS (4)
  - EYE SWELLING [None]
  - PURULENCE [None]
  - ULCERATIVE KERATITIS [None]
  - EYE INFECTION [None]
